FAERS Safety Report 6345992-9 (Version None)
Quarter: 2009Q3

REPORT INFORMATION
  Report Type: 
  Country: None (occurrence: None)
  Receive Date: 20090821
  Receipt Date: 20090616
  Transmission Date: 20100115
  Serious: Yes (Hospitalization)
  Sender: FDA-Public Use
  Company Number: 8047914

PATIENT
  Age: 44 Year
  Sex: Female
  Weight: 88.1 kg

DRUGS (4)
  1. CIMZIA [Suspect]
     Indication: CROHN'S DISEASE
     Dosage: 400 MG SC
     Route: 058
     Dates: start: 20081019
  2. ASACOL [Concomitant]
  3. PREDNISONE [Concomitant]
  4. PROTONIX [Concomitant]

REACTIONS (1)
  - CROHN'S DISEASE [None]
